FAERS Safety Report 5372871-6 (Version None)
Quarter: 2007Q2

REPORT INFORMATION
  Report Type: 
  Country: None (occurrence: None)
  Receive Date: 20070626
  Receipt Date: 20070614
  Transmission Date: 20071010
  Serious: Yes (Disabling)
  Sender: FDA-Public Use
  Company Number: 107#03#2007-02233

PATIENT
  Age: 58 Year
  Sex: Male

DRUGS (5)
  1. MIRTAZAPINE [Suspect]
     Indication: DEPRESSION
     Dosage: 45 MG (1X1),ORAL
     Route: 048
     Dates: start: 20060601, end: 20061123
  2. DEPAKOTE [Concomitant]
  3. OLANZAPINE [Concomitant]
  4. PROPRANOLOL [Concomitant]
  5. QUETIAPINE FUMARATE [Concomitant]

REACTIONS (3)
  - DYSTONIA [None]
  - TARDIVE DYSKINESIA [None]
  - TONGUE PARALYSIS [None]
